FAERS Safety Report 18421839 (Version 2)
Quarter: 2022Q3

REPORT INFORMATION
  Report Type: Report from Study
  Country: IN (occurrence: IN)
  Receive Date: 20201023
  Receipt Date: 20220912
  Transmission Date: 20221027
  Serious: Yes (Death, Other)
  Sender: FDA-Public Use
  Company Number: IN-NOVARTISPH-NVSC2020IN283089

PATIENT
  Age: 61 Year
  Sex: Male

DRUGS (2)
  1. VOTRIENT [Suspect]
     Active Substance: PAZOPANIB HYDROCHLORIDE
     Indication: Renal cell carcinoma
     Dosage: 400 MG, BID
     Route: 048
     Dates: start: 20170612, end: 20200908
  2. VOTRIENT [Suspect]
     Active Substance: PAZOPANIB HYDROCHLORIDE
     Dosage: 400 MG, BID
     Route: 065
     Dates: start: 20180702

REACTIONS (3)
  - Death [Fatal]
  - SARS-CoV-2 test positive [Unknown]
  - Inappropriate schedule of product administration [Unknown]

NARRATIVE: CASE EVENT DATE: 20170612
